FAERS Safety Report 9520742 (Version 1)
Quarter: 2013Q3

REPORT INFORMATION
  Report Type: Spontaneous
  Country: US (occurrence: US)
  Receive Date: 20130913
  Receipt Date: 20130913
  Transmission Date: 20140515
  Serious: No
  Sender: FDA-Public Use
  Company Number: US-009507513-1309USA004260

PATIENT
  Sex: Female

DRUGS (4)
  1. ASMANEX TWISTHALER [Suspect]
     Dosage: UNK, FORMULATION: AEROSOL (EA) 110
     Route: 055
  2. DULERA [Suspect]
     Dosage: UNK
  3. ADVAIR [Suspect]
     Dosage: UNK
  4. FLOVENT [Suspect]
     Dosage: UNK

REACTIONS (1)
  - Palpitations [Unknown]
